FAERS Safety Report 8346095 (Version 2)
Quarter: 2022Q3

REPORT INFORMATION
  Report Type: Spontaneous
  Country: IT (occurrence: IT)
  Receive Date: 20120120
  Receipt Date: 20220831
  Transmission Date: 20221027
  Serious: Yes (Other)
  Sender: FDA-Public Use
  Company Number: PHHY2012IT002318

PATIENT
  Age: 58 Year
  Sex: Female

DRUGS (13)
  1. SANDOSTATIN LAR DEPOT [Suspect]
     Active Substance: OCTREOTIDE ACETATE
     Indication: Neuroendocrine tumour
     Dosage: 30 MG, QMO (EVERY 28 DAYS)
     Route: 030
     Dates: start: 200504, end: 200508
  2. SANDOSTATIN LAR DEPOT [Suspect]
     Active Substance: OCTREOTIDE ACETATE
     Dosage: 30 MG, QMO (EVERY 28 DAYS)
     Route: 030
     Dates: start: 200810
  3. SANDOSTATIN LAR DEPOT [Suspect]
     Active Substance: OCTREOTIDE ACETATE
  4. EVEROLIMUS [Suspect]
     Active Substance: EVEROLIMUS
     Indication: Neuroendocrine tumour
     Dosage: 10 MG/DAY
     Route: 065
     Dates: start: 200810
  5. CISPLATIN [Suspect]
     Active Substance: CISPLATIN
     Indication: Neuroendocrine tumour
     Dosage: 80 MG/M2 (ON DAY 1)
     Route: 065
     Dates: start: 200802, end: 200808
  6. ETOPOSIDE [Suspect]
     Active Substance: ETOPOSIDE
     Indication: Neuroendocrine tumour
     Dosage: 120 MG/M2 (FOR 6 CYCLES)
     Route: 065
     Dates: start: 200802, end: 200808
  7. INTERFERON ALFA NOS [Suspect]
     Active Substance: INTERFERON ALFA-2A OR INTERFERON ALFA-2B
     Indication: Neuroendocrine tumour
     Dosage: UNK, QW3
     Route: 058
     Dates: start: 200509, end: 200604
  8. OXALIPLATIN [Suspect]
     Active Substance: OXALIPLATIN
     Indication: Neuroendocrine tumour
     Dosage: 130 MG/M2, TIW (PART OF XELOX REGIMEN)
     Route: 065
     Dates: start: 200605, end: 200608
  9. CAPECITABINE [Suspect]
     Active Substance: CAPECITABINE
     Indication: Neuroendocrine tumour
     Dosage: 2000 MG/M2 (PART OF XELOX REGIMEN)
     Route: 065
     Dates: start: 200605, end: 200608
  10. LANREOTIDE [Suspect]
     Active Substance: LANREOTIDE
     Indication: Neuroendocrine tumour
     Dosage: 30 MG, BIW
     Route: 065
     Dates: start: 200509, end: 200604
  11. FLUOROURACIL [Concomitant]
     Active Substance: FLUOROURACIL
     Indication: Neuroendocrine tumour
     Dosage: 500 MG/M2 (PART OF FDE REGIMEN)
     Route: 065
     Dates: start: 200609, end: 200703
  12. EPIRUBICIN [Concomitant]
     Active Substance: EPIRUBICIN
     Indication: Neuroendocrine tumour
     Dosage: 30 MG/M2 (PART OF FDE REGIMEN)
     Route: 065
     Dates: start: 200609, end: 200703
  13. DACARBAZINE [Concomitant]
     Active Substance: DACARBAZINE
     Indication: Neuroendocrine tumour
     Dosage: 200 MG/M2 (PART OF FDE REGIMEN)
     Route: 065
     Dates: start: 200609, end: 200703

REACTIONS (5)
  - Thrombocytopenia [Unknown]
  - Neutropenia [Unknown]
  - Nausea [Unknown]
  - Off label use [Unknown]
  - Treatment failure [Unknown]
